FAERS Safety Report 6825850-3 (Version None)
Quarter: 2010Q3

REPORT INFORMATION
  Report Type: 
  Country: None (occurrence: None)
  Receive Date: 20100707
  Receipt Date: 20100707
  Transmission Date: 20110219
  Serious: Yes (Other)
  Sender: FDA-Public Use
  Company Number: None

PATIENT
  Age: 21 Year
  Sex: Male
  Weight: 77.1115 kg

DRUGS (1)
  1. AFRIN [Suspect]
     Indication: SINUS HEADACHE
     Dosage: 2 SPRAYS IN EACH NOSTRIL 2X DAILY FOR 2 DAY NASAL
     Route: 045
     Dates: start: 20100624, end: 20100625

REACTIONS (2)
  - AGEUSIA [None]
  - ANOSMIA [None]
